FAERS Safety Report 10162328 (Version 1)
Quarter: 2014Q2

REPORT INFORMATION
  Report Type: Other
  Country: FR (occurrence: FR)
  Receive Date: 20140509
  Receipt Date: 20140509
  Transmission Date: 20141212
  Serious: Yes (Hospitalization)
  Sender: FDA-Public Use
  Company Number: FR-ASTELLAS-2014EU004952

PATIENT
  Age: 52 Year
  Sex: Female

DRUGS (3)
  1. PROGRAF [Suspect]
     Indication: PRODUCT USED FOR UNKNOWN INDICATION
     Dosage: UNK, 4 TIMES DAILY
     Route: 048
     Dates: start: 200910
  2. IMUREL                             /00001501/ [Suspect]
     Indication: PRODUCT USED FOR UNKNOWN INDICATION
     Route: 048
     Dates: start: 2009
  3. CITALOPRAM /00582602/ [Suspect]
     Indication: ANXIETY DISORDER
     Route: 048
     Dates: start: 20121207

REACTIONS (1)
  - Hypoglycaemia [Recovered/Resolved]
